FAERS Safety Report 4681420-7 (Version None)
Quarter: 2005Q2

REPORT INFORMATION
  Report Type: 
  Country: None (occurrence: None)
  Receive Date: 20050603
  Receipt Date: 20050525
  Transmission Date: 20051028
  Serious: Yes (Hospitalization)
  Sender: FDA-Public Use
  Company Number: 2005UW08181

PATIENT
  Age: 2 Year
  Sex: Male

DRUGS (5)
  1. RHINOCORT [Suspect]
     Indication: PHARYNGEAL OEDEMA
     Dosage: 2 SPRAYS EACH NOSTRIL DAILY
     Route: 045
  2. RHINOCORT [Suspect]
     Dosage: 2 SPRAYS EACH NOSTRIL DAILY
     Route: 045
  3. ATROVENT [Concomitant]
     Dosage: 4 TIMES DAILY
     Route: 048
  4. ATROVENT [Concomitant]
     Dosage: 2 PUFFS INTERMITTENT POSITIVE PRESSURE BREATHING BID
  5. FLOVENT [Concomitant]

REACTIONS (2)
  - EPISTAXIS [None]
  - HAEMORRHAGE [None]
